FAERS Safety Report 10511642 (Version 2)
Quarter: 2014Q4

REPORT INFORMATION
  Report Type: Spontaneous
  Country: GB (occurrence: GB)
  Receive Date: 20141010
  Receipt Date: 20141105
  Transmission Date: 20150528
  Serious: Yes (Other)
  Sender: FDA-Public Use
  Company Number: GB-WATSON-2014-21602

PATIENT
  Age: 15 Year
  Sex: Female

DRUGS (3)
  1. DOXYCYCLINE. [Concomitant]
     Active Substance: DOXYCYCLINE
     Indication: PRODUCT USED FOR UNKNOWN INDICATION
     Dosage: UNK
     Route: 065
  2. RISPERIDONE (UNKNOWN) [Suspect]
     Active Substance: RISPERIDONE
     Indication: PSYCHOTIC DISORDER
     Dosage: 3 MG, DAILY - 1MG IN THE MORNING AND 2MG AT NIGHT.
     Route: 048
     Dates: start: 20140801, end: 20140916
  3. QUETIAPINE FUMARATE (UNKNOWN) [Suspect]
     Active Substance: QUETIAPINE FUMARATE
     Indication: PSYCHOTIC DISORDER
     Dosage: 75 MG, UNKNOWN
     Route: 048
     Dates: start: 20140908, end: 20140915

REACTIONS (1)
  - Electrocardiogram QT prolonged [Not Recovered/Not Resolved]
